FAERS Safety Report 6392355-6 (Version None)
Quarter: 2009Q4

REPORT INFORMATION
  Report Type: 
  Country: None (occurrence: None)
  Receive Date: 20091007
  Receipt Date: 20091002
  Transmission Date: 20100525
  Serious: Yes (Death, Other)
  Sender: FDA-Public Use
  Company Number: PHHY2009BR42710

PATIENT
  Sex: Male

DRUGS (2)
  1. DIOVAN [Suspect]
     Indication: DYSPNOEA
     Dosage: 1 TABLET (160 MG)/DAY
     Route: 048
     Dates: start: 20030101
  2. CAPTOPRIL [Concomitant]

REACTIONS (2)
  - DEATH [None]
  - LUNG DISORDER [None]
